FAERS Safety Report 7942911-6 (Version None)
Quarter: 2011Q4

REPORT INFORMATION
  Report Type: 
  Country: None (occurrence: None)
  Receive Date: 20111128
  Receipt Date: 20111118
  Transmission Date: 20120403
  Serious: Yes (Hospitalization)
  Sender: FDA-Public Use
  Company Number: JP-MERCK-1111USA02213

PATIENT
  Age: 91 Year
  Sex: Female

DRUGS (6)
  1. MAGLAX (MAGNESIUM OXIDE) [Concomitant]
     Dosage: DAILY DOSAGE UNKNOWN
     Route: 048
  2. TOREMIFENE CITRATE [Concomitant]
     Dosage: DAILY DOSAGE UNKNOWN
     Route: 048
  3. REBAMIPIDE [Concomitant]
     Route: 048
  4. COZAAR [Suspect]
     Indication: HYPERTENSION
     Route: 048
     Dates: start: 20111107, end: 20111108
  5. HYZAAR [Suspect]
     Indication: HYPERTENSION
     Route: 048
     Dates: start: 20110916, end: 20111029
  6. SIGMART [Concomitant]
     Route: 048

REACTIONS (11)
  - SPONDYLOLISTHESIS [None]
  - HEPATIC FUNCTION ABNORMAL [None]
  - ARTERIOSCLEROSIS [None]
  - RENAL ATROPHY [None]
  - SPINAL OSTEOARTHRITIS [None]
  - CONSTIPATION [None]
  - AORTIC ANEURYSM [None]
  - CHOLELITHIASIS [None]
  - BLOOD CREATININE INCREASED [None]
  - DEHYDRATION [None]
  - BILIARY DILATATION [None]
